FAERS Safety Report 8758633 (Version 2)
Quarter: 2012Q4

REPORT INFORMATION
  Report Type: 
  Country: US (occurrence: US)
  Receive Date: 20120829
  Receipt Date: 20120918
  Transmission Date: 20130627
  Serious: Yes (Hospitalization, Disabling, Other)
  Sender: FDA-Public Use
  Company Number: US-009507513-1112USA00800

PATIENT

DRUGS (11)
  1. FOSAMAX [Suspect]
     Indication: OSTEOPENIA
     Dosage: 5 mg, UNK
     Route: 048
     Dates: start: 19980126, end: 200208
  2. FOSAMAX [Suspect]
     Indication: OSTEOPOROSIS
     Dosage: 35 mg, QW
     Route: 048
     Dates: start: 20021111, end: 200305
  3. FOSAMAX [Suspect]
     Dosage: 70 mg, QW
     Route: 048
     Dates: start: 20030807, end: 200610
  4. MK-9278 [Concomitant]
  5. CALCIUM (UNSPECIFIED) [Concomitant]
  6. VITAMIN D (UNSPECIFIED) [Concomitant]
  7. MAGNESIUM (UNSPECIFIED) [Concomitant]
  8. FOSAMAX PLUS D [Suspect]
     Indication: OSTEOPENIA
     Dosage: 70-2800
     Route: 048
     Dates: start: 20070514, end: 201004
  9. FOSAMAX PLUS D [Suspect]
     Indication: OSTEOPOROSIS
  10. FOSAMAX [Suspect]
     Indication: OSTEOPENIA
     Dosage: 70 mg, UNK
     Dates: start: 20100409
  11. FOSAMAX [Suspect]
     Indication: OSTEOPOROSIS
     Dosage: 70 mg, UNK
     Dates: start: 20100710, end: 20100924

REACTIONS (23)
  - Appendicectomy [Unknown]
  - Femur fracture [Recovering/Resolving]
  - Periodontal disease [Unknown]
  - Osteoporosis [Unknown]
  - Osteoarthritis [Unknown]
  - Ligament injury [Unknown]
  - Hyperlipidaemia [Unknown]
  - Mitral valve prolapse [Unknown]
  - Lobar pneumonia [Unknown]
  - Rhinitis allergic [Unknown]
  - Synovial cyst [Unknown]
  - Nerve injury [Unknown]
  - Cataract [Unknown]
  - Bronchitis [Unknown]
  - Impaired healing [Unknown]
  - Large intestine polyp [Unknown]
  - Diverticulum [Unknown]
  - Cholelithiasis [Unknown]
  - Biliary dilatation [Unknown]
  - Bone loss [Unknown]
  - Appendicitis [Unknown]
  - Intervertebral disc degeneration [Unknown]
  - Spinal compression fracture [Unknown]
